FAERS Safety Report 21164954 (Version 1)
Quarter: 2022Q3

REPORT INFORMATION
  Report Type: Spontaneous
  Country: US (occurrence: US)
  Receive Date: 20220803
  Receipt Date: 20220803
  Transmission Date: 20221026
  Serious: No
  Sender: FDA-Public Use
  Company Number: US-BRISTOL-MYERS SQUIBB COMPANY-2022-083913

PATIENT
  Age: 59 Year
  Sex: Male

DRUGS (1)
  1. REVLIMID [Suspect]
     Active Substance: LENALIDOMIDE
     Indication: Plasma cell myeloma
     Dosage: FREQ: 1 EVERY DAY FOR 14 DAYS ON, 7 DAYS OFF
     Route: 048
     Dates: start: 20220518

REACTIONS (2)
  - Treatment noncompliance [Unknown]
  - Hepatic enzyme increased [Unknown]
